FAERS Safety Report 9736733 (Version 1)
Quarter: 2013Q4

REPORT INFORMATION
  Report Type: Spontaneous
  Country: GB (occurrence: GB)
  Receive Date: 20131206
  Receipt Date: 20131206
  Transmission Date: 20140711
  Serious: Yes (Other)
  Sender: FDA-Public Use
  Company Number: PHHY2013GB139447

PATIENT
  Age: 49 Year
  Sex: Female

DRUGS (4)
  1. CLOZAPINE [Suspect]
     Indication: SCHIZOPHRENIA
     Dosage: 100 MG, UNK
  2. DEXAMETHASONE [Suspect]
  3. BENDROFLUMETHIAZIDE [Suspect]
  4. CANDESARTAN CILEXETIL [Suspect]

REACTIONS (8)
  - Pseudophaeochromocytoma [Recovering/Resolving]
  - Cushingoid [Recovering/Resolving]
  - Blood pressure increased [Recovering/Resolving]
  - Flushing [Recovering/Resolving]
  - Palpitations [Recovering/Resolving]
  - Hyperhidrosis [Recovering/Resolving]
  - Blood cortisol decreased [Recovering/Resolving]
  - Therapeutic response decreased [Unknown]
